FAERS Safety Report 16801236 (Version 2)
Quarter: 2019Q4

REPORT INFORMATION
  Report Type: Spontaneous
  Country: JP (occurrence: JP)
  Receive Date: 20190912
  Receipt Date: 20191106
  Transmission Date: 20200122
  Serious: Yes (Other)
  Sender: FDA-Public Use
  Company Number: JP-BAYER-2019-163092

PATIENT
  Age: 85 Year
  Sex: Male

DRUGS (1)
  1. NEXAVAR [Suspect]
     Active Substance: SORAFENIB
     Indication: HEPATOCELLULAR CARCINOMA
     Dosage: 400 MG, QD
     Route: 048
     Dates: start: 20190729, end: 20190902

REACTIONS (4)
  - Hepatocellular carcinoma [Not Recovered/Not Resolved]
  - Metastases to bone [None]
  - Therapeutic product effect incomplete [None]
  - Tumour marker increased [None]

NARRATIVE: CASE EVENT DATE: 201908
